FAERS Safety Report 19732357 (Version 1)
Quarter: 2021Q3

REPORT INFORMATION
  Report Type: Report from Study
  Country: CA (occurrence: CA)
  Receive Date: 20210822
  Receipt Date: 20210822
  Transmission Date: 20211014
  Serious: Yes (Other)
  Sender: FDA-Public Use
  Company Number: CA-TEVA-2021-CA-1943264

PATIENT
  Age: 44 Year
  Sex: Female

DRUGS (4)
  1. VITAMIN D [Concomitant]
     Active Substance: VITAMIN D NOS
  2. ATENOLOL. [Concomitant]
     Active Substance: ATENOLOL
  3. VITAMIN B12 [Concomitant]
     Active Substance: CYANOCOBALAMIN
  4. COPAXONE [Suspect]
     Active Substance: GLATIRAMER ACETATE
     Indication: MULTIPLE SCLEROSIS
     Dosage: 40 MG 3X A WEEK
     Dates: start: 20190706, end: 202103

REACTIONS (6)
  - Dyspnoea [Unknown]
  - Nausea [Unknown]
  - Drug hypersensitivity [Unknown]
  - Throat tightness [Unknown]
  - Dysphagia [Unknown]
  - Obstructive airways disorder [Unknown]
